FAERS Safety Report 8869995 (Version 1)
Quarter: 2012Q4

REPORT INFORMATION
  Report Type: 
  Country: US (occurrence: US)
  Receive Date: 20121028
  Receipt Date: 20121028
  Transmission Date: 20130627
  Serious: No
  Sender: FDA-Public Use
  Company Number: US-009507513-1210USA009235

PATIENT
  Age: 48 Year
  Sex: Male
  Weight: 76.19 kg

DRUGS (5)
  1. PEGINTRON [Suspect]
     Dosage: 120 Microgram, qw
     Route: 058
  2. RIBAVIRIN [Suspect]
     Route: 048
  3. VICTRELIS [Suspect]
     Route: 048
  4. TYLENOL [Concomitant]
     Route: 048
  5. VITAMINS (UNSPECIFIED) [Concomitant]
     Route: 048

REACTIONS (3)
  - Injection site rash [Unknown]
  - Contusion [Unknown]
  - Influenza like illness [Unknown]
